FAERS Safety Report 24463416 (Version 1)
Quarter: 2024Q4

REPORT INFORMATION
  Report Type: Report from Study
  Country: US (occurrence: US)
  Receive Date: 20241018
  Receipt Date: 20241018
  Transmission Date: 20250115
  Serious: No
  Sender: ROCHE
  Company Number: US-ROCHE-3069783

PATIENT
  Age: 11 Year
  Sex: Male

DRUGS (2)
  1. XOLAIR [Suspect]
     Active Substance: OMALIZUMAB
     Indication: Asthma
     Dosage: EVERY 4 WEEK
     Route: 058
  2. XOLAIR [Suspect]
     Active Substance: OMALIZUMAB
     Indication: Idiopathic urticaria

REACTIONS (7)
  - Flushing [Unknown]
  - Wheezing [Unknown]
  - Chest discomfort [Unknown]
  - Abdominal pain [Unknown]
  - Asthma [Unknown]
  - Acute sinusitis [Unknown]
  - Nasal congestion [Unknown]
